FAERS Safety Report 19133471 (Version 1)
Quarter: 2021Q2

REPORT INFORMATION
  Report Type: Report from Study
  Country: CO (occurrence: CO)
  Receive Date: 20210413
  Receipt Date: 20210413
  Transmission Date: 20210717
  Serious: Yes (Hospitalization, Other)
  Sender: FDA-Public Use
  Company Number: CO-JNJFOC-20210410361

PATIENT
  Age: 80 Year
  Sex: Female
  Weight: 72 kg

DRUGS (10)
  1. LEFLUNOMIDE. [Concomitant]
     Active Substance: LEFLUNOMIDE
  2. DEXLANZOPRAL [Concomitant]
  3. METOPROLOL. [Concomitant]
     Active Substance: METOPROLOL
  4. ROSUVASTATIN. [Concomitant]
     Active Substance: ROSUVASTATIN
  5. EMPAGLIFLOZIN [Concomitant]
     Active Substance: EMPAGLIFLOZIN
  6. CLOZAPINE. [Concomitant]
     Active Substance: CLOZAPINE
  7. SIMPONI [Suspect]
     Active Substance: GOLIMUMAB
     Indication: RHEUMATOID ARTHRITIS
     Route: 058
     Dates: start: 20150106
  8. FUROSEMIDE. [Concomitant]
     Active Substance: FUROSEMIDE
  9. APIXABAN [Concomitant]
     Active Substance: APIXABAN
  10. FLUIMUCIL [Concomitant]
     Active Substance: ACETYLCYSTEINE
     Route: 065

REACTIONS (7)
  - Asphyxia [Recovering/Resolving]
  - Hypertension [Recovering/Resolving]
  - Gait disturbance [Recovering/Resolving]
  - Rectal haemorrhage [Recovering/Resolving]
  - Arthritis [Recovering/Resolving]
  - Blood glucose fluctuation [Recovering/Resolving]
  - Speech disorder [Recovering/Resolving]

NARRATIVE: CASE EVENT DATE: 2021
